FAERS Safety Report 6097584-7 (Version None)
Quarter: 2009Q1

REPORT INFORMATION
  Report Type: 
  Country: None (occurrence: None)
  Receive Date: 20090227
  Receipt Date: 20081210
  Transmission Date: 20090719
  Serious: No
  Sender: FDA-Public Use
  Company Number: A0759738A

PATIENT
  Age: 73 Year
  Sex: Female

DRUGS (10)
  1. IMITREX [Suspect]
     Indication: MIGRAINE
     Dosage: 25MG AS REQUIRED
     Route: 048
     Dates: start: 20040101
  2. NEXIUM [Concomitant]
  3. TOPROL-XL [Concomitant]
  4. PREDNISONE [Concomitant]
  5. LORATADINE [Concomitant]
  6. DOXEPIN HCL [Concomitant]
  7. FLUTICASONE PROPIONATE [Concomitant]
  8. SIMVASTATIN [Concomitant]
  9. TRICOR [Concomitant]
  10. UNKNOWN MEDICATION [Concomitant]

REACTIONS (1)
  - DRUG INEFFECTIVE [None]
